FAERS Safety Report 5843680-6 (Version None)
Quarter: 2008Q3

REPORT INFORMATION
  Report Type: 
  Country: None (occurrence: None)
  Receive Date: 20080808
  Receipt Date: 20080724
  Transmission Date: 20090109
  Serious: Yes (Hospitalization, Disabling)
  Sender: FDA-Public Use
  Company Number: 2008-00172FE

PATIENT
  Age: 14 Year
  Sex: Male

DRUGS (2)
  1. ZOMACTON (ZOMACTON) (SOMATROPIN) [Suspect]
     Indication: GROWTH HORMONE DEFICIENCY
     Dosage: SC
     Route: 058
     Dates: start: 20070322, end: 20080209
  2. LEVOTHYROXINE SODIUM [Concomitant]

REACTIONS (2)
  - NEURILEMMOMA MALIGNANT [None]
  - TUMOUR NECROSIS [None]
